FAERS Safety Report 5706819-9 (Version None)
Quarter: 2008Q2

REPORT INFORMATION
  Report Type: 
  Country: None (occurrence: None)
  Receive Date: 20080416
  Receipt Date: 20080407
  Transmission Date: 20081010
  Serious: Yes (Hospitalization)
  Sender: FDA-Public Use
  Company Number: US-JNJFOC-20060504511

PATIENT
  Sex: Female
  Weight: 86.18 kg

DRUGS (5)
  1. RISPERDAL [Suspect]
     Indication: HALLUCINATION, AUDITORY
  2. SEROQUEL [Suspect]
     Indication: DRUG USE FOR UNKNOWN INDICATION
  3. VISTARIL [Concomitant]
  4. DEPAKOTE [Concomitant]
  5. SYNTHROID [Concomitant]

REACTIONS (2)
  - OVERDOSE [None]
  - SUICIDE ATTEMPT [None]
